FAERS Safety Report 9219082 (Version 1)
Quarter: 2013Q2

REPORT INFORMATION
  Report Type: Spontaneous
  Country: US (occurrence: None)
  Receive Date: 20130405
  Receipt Date: 20130405
  Transmission Date: 20140414
  Serious: No
  Sender: FDA-Public Use
  Company Number: None

PATIENT
  Age: 70 Year
  Sex: Male

DRUGS (1)
  1. MYCOPHENOLATE [Suspect]
     Indication: TRANSPLANT
     Route: 048

REACTIONS (2)
  - Sarcoma [None]
  - Neoplasm malignant [None]
